FAERS Safety Report 19624514 (Version 2)
Quarter: 2021Q3

REPORT INFORMATION
  Report Type: Report from Study
  Country: ES (occurrence: ES)
  Receive Date: 20210728
  Receipt Date: 20210805
  Transmission Date: 20211014
  Serious: Yes (Other)
  Sender: FDA-Public Use
  Company Number: ES-B.I. PHARMACEUTICALS,INC./RIDGEFIELD-2021-BI-117833

PATIENT

DRUGS (4)
  1. VARGATEF [Suspect]
     Active Substance: NINTEDANIB
     Indication: LUNG ADENOCARCINOMA
  2. DOCETAXEL. [Suspect]
     Active Substance: DOCETAXEL
     Indication: LUNG ADENOCARCINOMA
  3. DOCETAXEL. [Suspect]
     Active Substance: DOCETAXEL
     Indication: EGFR GENE MUTATION
     Dosage: INTRAVENOUS INFUSION
     Route: 042
  4. VARGATEF [Suspect]
     Active Substance: NINTEDANIB
     Indication: EGFR GENE MUTATION
     Route: 048

REACTIONS (1)
  - Anaemia [Unknown]
